FAERS Safety Report 8096847-3 (Version None)
Quarter: 2012Q1

REPORT INFORMATION
  Report Type: 
  Country: None (occurrence: None)
  Receive Date: 20120129
  Receipt Date: 20111205
  Transmission Date: 20120608
  Serious: No
  Sender: FDA-Public Use
  Company Number: US-ABBOTT-11P-163-0880550-00

PATIENT
  Sex: Female
  Weight: 58.566 kg

DRUGS (16)
  1. BENADRYL [Suspect]
     Indication: PRURITUS
     Dosage: 1-3 TIMES A DAY AS NEEDED
  2. PLAQUENIL [Suspect]
     Indication: RHEUMATOID ARTHRITIS
  3. THEOPHYLLINE [Concomitant]
     Indication: ASTHMA
  4. HYDROXYZINE [Suspect]
     Indication: CHILLS
  5. SINGULAIR [Concomitant]
     Indication: ASTHMA
  6. HUMIRA [Suspect]
     Indication: RHEUMATOID ARTHRITIS
     Route: 058
     Dates: start: 20101001
  7. MOBIC [Concomitant]
     Indication: INFLAMMATION
  8. KENALOG [Concomitant]
     Indication: ARTHRALGIA
     Dosage: AS NEEDED
  9. BENADRYL [Suspect]
     Indication: CHILLS
  10. HYDROXYZINE [Suspect]
     Indication: PRURITUS
     Dosage: AT BEDTIME
     Dates: start: 20111001
  11. ACETAMINOPHEN [Concomitant]
     Indication: RHEUMATOID ARTHRITIS
     Dosage: IN MORNING
  12. PROTONIX [Concomitant]
     Indication: GASTRIC DISORDER
  13. HYDROCODONE BITARTRATE AND ACETAMINOPHEN [Suspect]
     Indication: RHEUMATOID ARTHRITIS
     Dosage: 1/2 IN MORNING 5/500 AS REQUIRED
  14. DICLOFENAC [Concomitant]
     Indication: INFLAMMATION
  15. ALLEGRA-D 12 HOUR [Concomitant]
     Indication: ASTHMA
  16. PREDNISONE TAB [Concomitant]
     Indication: RHEUMATOID ARTHRITIS

REACTIONS (9)
  - ARTHROPATHY [None]
  - SOMNOLENCE [None]
  - PAIN IN EXTREMITY [None]
  - CHILLS [None]
  - PAIN [None]
  - ARTHRALGIA [None]
  - OSTEOARTHRITIS [None]
  - PRURITUS GENERALISED [None]
  - NODULE [None]
